FAERS Safety Report 11953195 (Version 1)
Quarter: 2016Q1

REPORT INFORMATION
  Report Type: Spontaneous
  Country: US (occurrence: US)
  Receive Date: 20160125
  Receipt Date: 20160125
  Transmission Date: 20160526
  Serious: Yes (Other)
  Sender: FDA-Public Use
  Company Number: US-ABBVIE-15K-163-1336443-00

PATIENT
  Age: 66 Year
  Sex: Female
  Weight: 72.64 kg

DRUGS (4)
  1. LISINOPRIL. [Concomitant]
     Active Substance: LISINOPRIL
     Indication: HYPERTENSION
  2. HUMIRA [Suspect]
     Active Substance: ADALIMUMAB
     Indication: PSORIATIC ARTHROPATHY
  3. WARFARIN [Concomitant]
     Active Substance: WARFARIN
     Indication: CEREBROVASCULAR ACCIDENT
  4. HUMIRA [Suspect]
     Active Substance: ADALIMUMAB
     Indication: PSORIASIS
     Route: 065
     Dates: start: 2008, end: 201411

REACTIONS (3)
  - Squamous cell carcinoma [Recovered/Resolved]
  - Glucose tolerance impaired [Recovering/Resolving]
  - Psoriasis [Not Recovered/Not Resolved]

NARRATIVE: CASE EVENT DATE: 2014
